FAERS Safety Report 6150177-5 (Version None)
Quarter: 2009Q2

REPORT INFORMATION
  Report Type: 
  Country: None (occurrence: None)
  Receive Date: 20090409
  Receipt Date: 20090331
  Transmission Date: 20091009
  Serious: Yes (Life-Threatening)
  Sender: FDA-Public Use
  Company Number: GB-PFIZER INC-2007046974

PATIENT

DRUGS (1)
  1. MISOPROSTOL [Suspect]
     Indication: POSTPARTUM HAEMORRHAGE
     Route: 015

REACTIONS (1)
  - URETERAL NECROSIS [None]
